FAERS Safety Report 10271918 (Version 3)
Quarter: 2014Q4

REPORT INFORMATION
  Report Type: Spontaneous
  Country: JP (occurrence: JP)
  Receive Date: 20140702
  Receipt Date: 20141103
  Transmission Date: 20150528
  Serious: Yes (Hospitalization)
  Sender: FDA-Public Use
  Company Number: PHHY2014JP078270

PATIENT
  Age: 26 Year
  Sex: Male

DRUGS (5)
  1. GILENYA [Suspect]
     Active Substance: FINGOLIMOD HYDROCHLORIDE
     Dosage: 0.5 MG, QD
     Route: 048
     Dates: start: 20140627
  2. GILENYA [Suspect]
     Active Substance: FINGOLIMOD HYDROCHLORIDE
     Dosage: 0.5 MG, QD
     Route: 048
     Dates: start: 20140513, end: 20140620
  3. DANTRIUM [Concomitant]
     Active Substance: DANTROLENE SODIUM
     Indication: PRODUCT USED FOR UNKNOWN INDICATION
     Route: 048
     Dates: start: 20140526
  4. GILENYA [Suspect]
     Active Substance: FINGOLIMOD HYDROCHLORIDE
     Indication: MULTIPLE SCLEROSIS RELAPSE PROPHYLAXIS
     Dosage: 0.25 MG, QD
     Route: 048
     Dates: start: 20140508, end: 20140512
  5. AROFUTO [Concomitant]
     Indication: PRODUCT USED FOR UNKNOWN INDICATION
     Dosage: 60 MG, UNK
     Route: 048
     Dates: start: 20140509

REACTIONS (2)
  - Prescribed underdose [Unknown]
  - Rhabdomyolysis [Recovered/Resolved]

NARRATIVE: CASE EVENT DATE: 20140617
